FAERS Safety Report 5309403-4 (Version None)
Quarter: 2007Q2

REPORT INFORMATION
  Report Type: 
  Country: None (occurrence: None)
  Receive Date: 20070425
  Receipt Date: 20070425
  Transmission Date: 20071010
  Serious: Yes (Life-Threatening)
  Sender: FDA-Public Use
  Company Number: None

PATIENT
  Age: 13 Month
  Sex: Female
  Weight: 10 kg

DRUGS (1)
  1. ACETADOTE [Suspect]
     Indication: DRUG TOXICITY
     Dates: start: 20070411, end: 20070411

REACTIONS (6)
  - BLOOD SODIUM DECREASED [None]
  - CONVULSION [None]
  - DRUG DISPENSING ERROR [None]
  - INCORRECT DOSE ADMINISTERED [None]
  - MEDICATION ERROR [None]
  - MENTAL STATUS CHANGES [None]
